FAERS Safety Report 5379052-0 (Version None)
Quarter: 2007Q3

REPORT INFORMATION
  Report Type: 
  Country: None (occurrence: None)
  Receive Date: 20070702
  Receipt Date: 20070615
  Transmission Date: 20080115
  Serious: Yes (Hospitalization)
  Sender: FDA-Public Use
  Company Number: 8015579

PATIENT
  Sex: Female

DRUGS (3)
  1. KEPPRA [Suspect]
     Indication: CONVULSION
     Dosage: PO
     Route: 048
  2. TEGRETOL [Suspect]
     Indication: CONVULSION
     Dosage: PO
     Route: 048
  3. TEGRETOL [Suspect]
     Indication: CONVULSION

REACTIONS (2)
  - BLOOD COUNT ABNORMAL [None]
  - WHITE BLOOD CELL COUNT DECREASED [None]
